FAERS Safety Report 6054569-4 (Version None)
Quarter: 2009Q1

REPORT INFORMATION
  Report Type: 
  Country: None (occurrence: None)
  Receive Date: 20090127
  Receipt Date: 20090123
  Transmission Date: 20090719
  Serious: Yes (Death, Hospitalization)
  Sender: FDA-Public Use
  Company Number: PHHY2009BR02511

PATIENT
  Age: 92 Year
  Sex: Female

DRUGS (1)
  1. EXELON [Suspect]
     Indication: AMNESIA
     Dosage: 2 DF, QD
     Route: 048

REACTIONS (2)
  - PNEUMONIA [None]
  - RESPIRATORY DISORDER [None]
